FAERS Safety Report 18862815 (Version 1)
Quarter: 2021Q1

REPORT INFORMATION
  Report Type: Other
  Country: GB (occurrence: GB)
  Receive Date: 20210208
  Receipt Date: 20210208
  Transmission Date: 20210420
  Serious: Yes (Death, Other)
  Sender: FDA-Public Use
  Company Number: GB-ROCHE-2762075

PATIENT

DRUGS (7)
  1. SOMATROPIN. [Suspect]
     Active Substance: SOMATROPIN
     Indication: GROWTH HORMONE DEFICIENCY
  2. SOMATROPIN. [Suspect]
     Active Substance: SOMATROPIN
     Indication: CHRONIC KIDNEY DISEASE
  3. SOMATROPIN. [Suspect]
     Active Substance: SOMATROPIN
     Indication: NEPHROPATHY
  4. SOMATROPIN. [Suspect]
     Active Substance: SOMATROPIN
     Indication: SKELETAL DYSPLASIA
  5. SOMATROPIN. [Suspect]
     Active Substance: SOMATROPIN
     Indication: GROWTH FAILURE
     Route: 065
  6. SOMATROPIN. [Suspect]
     Active Substance: SOMATROPIN
     Indication: TURNER^S SYNDROME
  7. SOMATROPIN. [Suspect]
     Active Substance: SOMATROPIN
     Indication: SMALL FOR DATES BABY

REACTIONS (26)
  - Malignant melanoma [Fatal]
  - Vulval cancer [Unknown]
  - Testis cancer [Unknown]
  - Renal cancer [Fatal]
  - Non-Hodgkin^s lymphoma [Fatal]
  - Lung neoplasm malignant [Fatal]
  - Thyroid cancer [Fatal]
  - Leukaemia [Fatal]
  - Skin cancer [Fatal]
  - Soft tissue sarcoma [Fatal]
  - Ovarian cancer [Fatal]
  - Lip and/or oral cavity cancer [Fatal]
  - Prostate cancer [Fatal]
  - Central nervous system neoplasm [Fatal]
  - Pharyngeal cancer [Fatal]
  - Pancreatic carcinoma [Fatal]
  - Bone cancer [Fatal]
  - Breast cancer [Fatal]
  - Cervix neoplasm [Unknown]
  - Bladder cancer [Fatal]
  - Off label use [Unknown]
  - Intentional product use issue [Unknown]
  - Hodgkin^s disease [Unknown]
  - Tongue neoplasm malignant stage unspecified [Fatal]
  - Uterine cancer [Fatal]
  - Colorectal cancer [Fatal]
